FAERS Safety Report 9056912 (Version 2)
Quarter: 2013Q1

REPORT INFORMATION
  Report Type: Spontaneous
  Country: US (occurrence: US)
  Receive Date: 20130201
  Receipt Date: 20130208
  Transmission Date: 20140127
  Serious: No
  Sender: FDA-Public Use
  Company Number: US-009507513-1301USA014115

PATIENT
  Age: 19 None
  Sex: Female
  Weight: 59.86 kg

DRUGS (2)
  1. NUVARING [Suspect]
     Indication: MENORRHAGIA
     Dosage: ONE RING EVERY 28 DAYS
     Route: 067
     Dates: start: 200901
  2. LAMOTRIGINE [Concomitant]

REACTIONS (4)
  - Menorrhagia [Recovered/Resolved]
  - Inappropriate schedule of drug administration [Unknown]
  - Incorrect drug administration duration [Unknown]
  - Off label use [Unknown]
